FAERS Safety Report 21719096 (Version 1)
Quarter: 2022Q4

REPORT INFORMATION
  Report Type: Spontaneous
  Country: US (occurrence: US)
  Receive Date: 20221213
  Receipt Date: 20221213
  Transmission Date: 20230112
  Serious: No
  Sender: FDA-Public Use
  Company Number: US-KYOWAKIRIN-2022BKK019212

PATIENT

DRUGS (4)
  1. CRYSVITA [Suspect]
     Active Substance: BUROSUMAB-TWZA
     Indication: Hereditary hypophosphataemic rickets
     Dosage: 80 MG, 1X/2 WEEKS (BROKEN UP AS 2 - THIRTY MG VIALS AND 1 -TWENTY MG VIAL FOR EACH DOSE)
     Route: 058
     Dates: start: 20191009
  2. CRYSVITA [Suspect]
     Active Substance: BUROSUMAB-TWZA
     Dosage: 70 MG, 1X/2 WEEKS (1- THIRTY MG VIAL AND 2- TWENTY MG VIALS)
     Route: 058
     Dates: start: 20221208
  3. CRYSVITA [Suspect]
     Active Substance: BUROSUMAB-TWZA
     Indication: Hereditary hypophosphataemic rickets
     Dosage: 80 MG, 1X/2 WEEKS (BROKEN UP AS 2 - THIRTY MG VIALS AND 1 -TWENTY MG VIAL FOR EACH DOSE)
     Route: 058
     Dates: start: 20191009
  4. CRYSVITA [Suspect]
     Active Substance: BUROSUMAB-TWZA
     Dosage: 70 MG, 1X/2 WEEKS (1- THIRTY MG VIAL AND 2- TWENTY MG VIALS)
     Route: 058
     Dates: start: 20221208

REACTIONS (1)
  - Incorrect dose administered [Not Recovered/Not Resolved]

NARRATIVE: CASE EVENT DATE: 20221208
